FAERS Safety Report 15640634 (Version 1)
Quarter: 2018Q4

REPORT INFORMATION
  Report Type: Spontaneous
  Country: GB (occurrence: GB)
  Receive Date: 20181120
  Receipt Date: 20181120
  Transmission Date: 20190205
  Serious: Yes (Hospitalization)
  Sender: FDA-Public Use
  Company Number: GB-TEVA-2018-GB-976174

PATIENT
  Age: 81 Year
  Sex: Male

DRUGS (17)
  1. QVAR [Concomitant]
     Active Substance: BECLOMETHASONE DIPROPIONATE
     Route: 065
  2. MIRTAZAPINE. [Suspect]
     Active Substance: MIRTAZAPINE
     Dosage: 45 MILLIGRAM DAILY; STOPPED BY GP AND SWITCHED TO SERTRALINE.
     Route: 048
     Dates: end: 20180924
  3. ALENDRONIC ACID [Concomitant]
     Active Substance: ALENDRONIC ACID
  4. SERTRALINE [Suspect]
     Active Substance: SERTRALINE HYDROCHLORIDE
     Dosage: STOPPED AS TO RESTART ON MIRTAZAPINE
     Route: 048
     Dates: start: 20180925, end: 20181003
  5. BIMATOPROST. [Concomitant]
     Active Substance: BIMATOPROST
  6. ALGINATES [Concomitant]
     Route: 048
  7. METHOTREXATE. [Concomitant]
     Active Substance: METHOTREXATE
  8. IBUGEL [Concomitant]
     Active Substance: IBUPROFEN
     Route: 065
  9. BRIMONIDINE [Concomitant]
     Active Substance: BRIMONIDINE TARTRATE
  10. ADCAL-D3 [Concomitant]
     Active Substance: CALCIUM CARBONATE\CHOLECALCIFEROL
  11. TIMOLOL. [Concomitant]
     Active Substance: TIMOLOL
  12. VENTOLIN [Concomitant]
     Active Substance: ALBUTEROL SULFATE
  13. DORZOLAMIDE [Concomitant]
     Active Substance: DORZOLAMIDE
  14. PREDNISOLONE. [Concomitant]
     Active Substance: PREDNISOLONE
  15. PARACETAMOL [Concomitant]
     Active Substance: ACETAMINOPHEN
  16. FOLIC ACID. [Concomitant]
     Active Substance: FOLIC ACID
  17. ATORVASTATIN [Concomitant]
     Active Substance: ATORVASTATIN

REACTIONS (4)
  - Dizziness [Unknown]
  - Hyperhidrosis [Unknown]
  - Drug withdrawal syndrome [Unknown]
  - Malaise [Unknown]

NARRATIVE: CASE EVENT DATE: 20181003
